FAERS Safety Report 6870153-4 (Version None)
Quarter: 2010Q3

REPORT INFORMATION
  Report Type: 
  Country: None (occurrence: None)
  Receive Date: 20100721
  Receipt Date: 20100707
  Transmission Date: 20110219
  Serious: Yes (Death, Hospitalization)
  Sender: FDA-Public Use
  Company Number: CN-JNJFOC-20100702653

PATIENT
  Age: 88 Year
  Sex: Male
  Weight: 61 kg

DRUGS (3)
  1. DACOGEN [Suspect]
     Indication: MYELODYSPLASTIC SYNDROME
     Dosage: 50 MG, 1 IN 1 DAY, INTRAVENOUS DRIP
     Route: 041
     Dates: start: 20100401, end: 20100430
  2. PAMBA (AMINOMETHYLBENZOIC ACID) [Concomitant]
  3. CEFMETAZOLE SODIUM (CEFMETAZOLE SODIUM) [Concomitant]

REACTIONS (2)
  - CEREBRAL HAEMORRHAGE [None]
  - INFECTION [None]
